FAERS Safety Report 13513409 (Version 2)
Quarter: 2018Q1

REPORT INFORMATION
  Report Type: Spontaneous
  Country: US (occurrence: US)
  Receive Date: 20170504
  Receipt Date: 20180223
  Transmission Date: 20180508
  Serious: Yes (Death, Hospitalization)
  Sender: FDA-Public Use
  Company Number: US-B.I. PHARMACEUTICALS,INC./RIDGEFIELD-2017-BI-024867

PATIENT
  Age: 80 Year
  Sex: Female

DRUGS (1)
  1. PRADAXA [Suspect]
     Active Substance: DABIGATRAN ETEXILATE MESYLATE
     Indication: ATRIAL FIBRILLATION
     Route: 065
     Dates: start: 201102

REACTIONS (6)
  - Shock haemorrhagic [Unknown]
  - Diverticulum [Unknown]
  - Haemorrhagic anaemia [Recovering/Resolving]
  - Rectal haemorrhage [Unknown]
  - Lower gastrointestinal haemorrhage [Fatal]
  - Coagulopathy [Unknown]

NARRATIVE: CASE EVENT DATE: 20131204
